FAERS Safety Report 22096653 (Version 1)
Quarter: 2023Q1

REPORT INFORMATION
  Report Type: Spontaneous
  Country: US (occurrence: US)
  Receive Date: 20230315
  Receipt Date: 20230315
  Transmission Date: 20230418
  Serious: Yes (Death, Hospitalization)
  Sender: FDA-Public Use
  Company Number: US-TEVA-2023-US-2864994

PATIENT
  Age: 68 Year
  Sex: Female

DRUGS (2)
  1. METHOTREXATE [Suspect]
     Active Substance: METHOTREXATE
     Indication: Product used for unknown indication
     Route: 065
  2. FOLATE SODIUM [Suspect]
     Active Substance: FOLATE SODIUM
     Indication: Toxicity to various agents
     Route: 065

REACTIONS (5)
  - Toxicity to various agents [Fatal]
  - Paralysis [Fatal]
  - Pancytopenia [Fatal]
  - Acute kidney injury [Fatal]
  - Drug ineffective [Fatal]
